FAERS Safety Report 17907140 (Version 2)
Quarter: 2020Q3

REPORT INFORMATION
  Report Type: Spontaneous
  Country: ZA (occurrence: ZA)
  Receive Date: 20200617
  Receipt Date: 20200925
  Transmission Date: 20201103
  Serious: Yes (Other)
  Sender: FDA-Public Use
  Company Number: ZA-AMGEN-ZAFSP2020072106

PATIENT
  Age: 64 Year
  Sex: Male
  Weight: 73 kg

DRUGS (1)
  1. ENBREL [Suspect]
     Active Substance: ETANERCEPT
     Indication: PRODUCT USED FOR UNKNOWN INDICATION
     Dosage: 50 MG, WEEKLY
     Route: 058

REACTIONS (4)
  - Musculoskeletal stiffness [Recovering/Resolving]
  - Osteoarthritis [Unknown]
  - Pain [Recovering/Resolving]
  - Swelling [Unknown]
